FAERS Safety Report 9018464 (Version 2)
Quarter: 2013Q1

REPORT INFORMATION
  Report Type: Spontaneous
  Country: JP (occurrence: JP)
  Receive Date: 20130118
  Receipt Date: 20130206
  Transmission Date: 20140127
  Serious: Yes (Hospitalization, Disabling, Other)
  Sender: FDA-Public Use
  Company Number: JP-ASTELLAS-2012JP012007

PATIENT
  Age: 25 Year
  Sex: Female
  Weight: 55 kg

DRUGS (4)
  1. PROGRAF [Suspect]
     Indication: STEM CELL TRANSPLANT
     Dosage: 0.8 MG, UID/QD
     Route: 041
     Dates: start: 20121108, end: 20121219
  2. SOL-MELCORT [Suspect]
     Indication: ACUTE GRAFT VERSUS HOST DISEASE
     Dosage: 62.5 MG, BID
     Route: 042
     Dates: start: 20121201, end: 20130101
  3. FOSCAVIR [Concomitant]
     Indication: IMMUNOSUPPRESSANT DRUG THERAPY
     Dosage: 2300 MG, BID
     Route: 042
     Dates: start: 20121218
  4. RECOMODULIN [Concomitant]
     Indication: THROMBOTIC MICROANGIOPATHY
     Dosage: 10000 IU, UID/QD
     Route: 042
     Dates: start: 20121207, end: 20121219

REACTIONS (4)
  - Drug ineffective [Unknown]
  - Acute graft versus host disease [Recovered/Resolved]
  - Thrombotic microangiopathy [Recovered/Resolved]
  - Post transplant distal limb syndrome [Recovered/Resolved]
